FAERS Safety Report 17995279 (Version 3)
Quarter: 2023Q1

REPORT INFORMATION
  Report Type: Spontaneous
  Country: US (occurrence: US)
  Receive Date: 20200708
  Receipt Date: 20230213
  Transmission Date: 20230418
  Serious: Yes (Other)
  Sender: FDA-Public Use
  Company Number: US-GILEAD-2020-0478762

PATIENT
  Age: 44 Year
  Sex: Male

DRUGS (4)
  1. TRUVADA [Suspect]
     Active Substance: EMTRICITABINE\TENOFOVIR DISOPROXIL FUMARATE
     Indication: HIV infection
     Dosage: UNK
     Route: 048
     Dates: start: 20050824, end: 201312
  2. TRUVADA [Suspect]
     Active Substance: EMTRICITABINE\TENOFOVIR DISOPROXIL FUMARATE
     Dosage: UNK
     Route: 048
     Dates: start: 200006, end: 2007
  3. TRUVADA [Suspect]
     Active Substance: EMTRICITABINE\TENOFOVIR DISOPROXIL FUMARATE
     Dosage: UNK
     Route: 048
     Dates: start: 2004, end: 2007
  4. ATRIPLA [Suspect]
     Active Substance: EFAVIRENZ\EMTRICITABINE\TENOFOVIR DISOPROXIL FUMARATE
     Indication: HIV infection
     Dosage: UNK
     Route: 048
     Dates: start: 20081208, end: 20090129

REACTIONS (8)
  - Chronic kidney disease [Not Recovered/Not Resolved]
  - Renal failure [Unknown]
  - Acute kidney injury [Not Recovered/Not Resolved]
  - Renal impairment [Not Recovered/Not Resolved]
  - Bone density decreased [Unknown]
  - Tooth loss [Not Recovered/Not Resolved]
  - Renal colic [Not Recovered/Not Resolved]
  - Proteinuria [Not Recovered/Not Resolved]

NARRATIVE: CASE EVENT DATE: 20020101
